FAERS Safety Report 13984033 (Version 1)
Quarter: 2017Q3

REPORT INFORMATION
  Report Type: Spontaneous
  Country: US (occurrence: US)
  Receive Date: 20170918
  Receipt Date: 20170918
  Transmission Date: 20171128
  Serious: No
  Sender: FDA-Public Use
  Company Number: US-TEVA-793737ACC

PATIENT
  Sex: Female

DRUGS (1)
  1. DORZOLAMIDE W/TIMOLOL [Suspect]
     Active Substance: DORZOLAMIDE HYDROCHLORIDE\TIMOLOL MALEATE
     Indication: GLAUCOMA
     Dosage: ONE DROP, DOSE STRENGTH:  2/0.5%

REACTIONS (2)
  - Product storage error [Unknown]
  - Drug ineffective [Unknown]
